FAERS Safety Report 13533454 (Version 1)
Quarter: 2017Q2

REPORT INFORMATION
  Report Type: Other
  Country: CA (occurrence: CA)
  Receive Date: 20170510
  Receipt Date: 20170510
  Transmission Date: 20170830
  Serious: Yes (Hospitalization, Other)
  Sender: FDA-Public Use
  Company Number: CA-APOTEX-2017AP011511

PATIENT
  Age: 79 Year
  Sex: Male

DRUGS (2)
  1. APO-AMLODIPINE [Suspect]
     Active Substance: AMLODIPINE BESYLATE
     Indication: HYPERTENSION
     Dosage: 5 MG, QD
     Route: 065
  2. OLMETEC [Suspect]
     Active Substance: OLMESARTAN MEDOXOMIL
     Indication: HYPERTENSION
     Dosage: 40 MG, QD
     Route: 065

REACTIONS (5)
  - Metabolic acidosis [Unknown]
  - Mallory-Weiss syndrome [Unknown]
  - Hypotension [Unknown]
  - Acute kidney injury [Unknown]
  - Malabsorption [Unknown]
